FAERS Safety Report 10957210 (Version 1)
Quarter: 2015Q1

REPORT INFORMATION
  Report Type: Spontaneous
  Country: US (occurrence: None)
  Receive Date: 20150226
  Receipt Date: 20150226
  Transmission Date: 20150721
  Serious: No
  Sender: FDA-Public Use
  Company Number: TAP2005Q00835

PATIENT
  Age: 69 Year
  Sex: Male

DRUGS (6)
  1. GENTAMICIN. [Concomitant]
     Active Substance: GENTAMICIN
  2. PREVACID [Suspect]
     Active Substance: LANSOPRAZOLE
     Indication: PROPHYLAXIS
     Route: 048
     Dates: start: 20050502, end: 20050506
  3. RIFAMPIN. [Concomitant]
     Active Substance: RIFAMPIN
  4. VANCOMYCIN [Concomitant]
     Active Substance: VANCOMYCIN
  5. PREVACID [Suspect]
     Active Substance: LANSOPRAZOLE
     Indication: STRESS ULCER
     Route: 048
     Dates: start: 20050502, end: 20050506
  6. ACIPHEX [Concomitant]
     Active Substance: RABEPRAZOLE SODIUM

REACTIONS (1)
  - Thrombocytopenia [None]

NARRATIVE: CASE EVENT DATE: 20050503
